FAERS Safety Report 19955393 (Version 2)
Quarter: 2022Q2

REPORT INFORMATION
  Report Type: Spontaneous
  Country: US (occurrence: US)
  Receive Date: 20211013
  Receipt Date: 20220425
  Transmission Date: 20220721
  Serious: Yes (Other)
  Sender: FDA-Public Use
  Company Number: US-PRINSTON PHARMACEUTICAL INC.-2021PRN00356

PATIENT
  Sex: Female

DRUGS (2)
  1. LISINOPRIL [Suspect]
     Active Substance: LISINOPRIL
     Indication: Blood pressure abnormal
     Dosage: UNK
  2. LISINOPRIL [Suspect]
     Active Substance: LISINOPRIL
     Dosage: DOUBLED UP

REACTIONS (4)
  - Surgery [Unknown]
  - Haemorrhage [Unknown]
  - Blood pressure abnormal [Unknown]
  - Drug ineffective [Unknown]
